FAERS Safety Report 4294411-5 (Version None)
Quarter: 2004Q1

REPORT INFORMATION
  Report Type: 
  Country: None (occurrence: None)
  Receive Date: 20040211
  Receipt Date: 20040128
  Transmission Date: 20041129
  Serious: Yes (Other)
  Sender: FDA-Public Use
  Company Number: S04-USA-00315-01

PATIENT
  Sex: Male

DRUGS (2)
  1. CELEXA [Suspect]
  2. XANAX [Suspect]

REACTIONS (8)
  - CRYING [None]
  - DIFFICULTY IN WALKING [None]
  - DYSURIA [None]
  - HEPATIC FAILURE [None]
  - HYPERHIDROSIS [None]
  - HYPOAESTHESIA [None]
  - OEDEMA PERIPHERAL [None]
  - RASH [None]
